FAERS Safety Report 7933525-2 (Version None)
Quarter: 2011Q4

REPORT INFORMATION
  Report Type: 
  Country: None (occurrence: None)
  Receive Date: 20111122
  Receipt Date: 20101214
  Transmission Date: 20120403
  Serious: Yes (Other)
  Sender: FDA-Public Use
  Company Number: GB-AMGEN-GBRSP2010013525

PATIENT
  Age: 51 Year
  Sex: Male

DRUGS (1)
  1. ETANERCEPT [Suspect]
     Indication: RHEUMATOID ARTHRITIS
     Dosage: 2X/WEEK ON SUNDAYS AND THURSDAYS
     Dates: start: 20070101

REACTIONS (11)
  - BONE PAIN [None]
  - MOVEMENT DISORDER [None]
  - EYE DISORDER [None]
  - RHEUMATOID ARTHRITIS [None]
  - GASTRIC DISORDER [None]
  - PAIN [None]
  - GASTROINTESTINAL DISORDER [None]
  - DEPRESSED MOOD [None]
  - EYE PAIN [None]
  - HEAD DISCOMFORT [None]
  - DRUG INEFFECTIVE [None]
